FAERS Safety Report 24904146 (Version 1)
Quarter: 2025Q1

REPORT INFORMATION
  Report Type: Spontaneous
  Country: US (occurrence: None)
  Receive Date: 20250129
  Receipt Date: 20250129
  Transmission Date: 20250409
  Serious: Yes (Other)
  Sender: FDA-CTU
  Company Number: None

PATIENT
  Age: 29 Year
  Sex: Female
  Weight: 56.7 kg

DRUGS (2)
  1. BUPROPION [Suspect]
     Active Substance: BUPROPION
  2. BUPROPION [Concomitant]
     Active Substance: BUPROPION

REACTIONS (2)
  - Postpartum haemorrhage [None]
  - Perineal injury [None]

NARRATIVE: CASE EVENT DATE: 20211227
